FAERS Safety Report 20582468 (Version 2)
Quarter: 2022Q2

REPORT INFORMATION
  Report Type: Spontaneous
  Country: US (occurrence: US)
  Receive Date: 20220311
  Receipt Date: 20220615
  Transmission Date: 20220721
  Serious: Yes (Other)
  Sender: FDA-Public Use
  Company Number: US-SA-SAC20220307000473

PATIENT
  Sex: Female

DRUGS (2)
  1. DUPIXENT [Suspect]
     Active Substance: DUPILUMAB
     Indication: Nasal polyps
     Dosage: 300 MG, QOW
     Route: 058
  2. DUPIXENT [Suspect]
     Active Substance: DUPILUMAB
     Indication: Sinus polyp

REACTIONS (10)
  - Pancreatitis [Unknown]
  - Abdominal pain [Recovered/Resolved]
  - Cough [Unknown]
  - Abdominal pain upper [Unknown]
  - Diarrhoea [Unknown]
  - Bowel movement irregularity [Unknown]
  - Pain [Unknown]
  - Dry eye [Unknown]
  - Eye pruritus [Unknown]
  - Product use in unapproved indication [Unknown]
